FAERS Safety Report 6518244-1 (Version None)
Quarter: 2009Q4

REPORT INFORMATION
  Report Type: 
  Country: None (occurrence: None)
  Receive Date: 20091223
  Receipt Date: 20091223
  Transmission Date: 20100525
  Serious: Yes (Other)
  Sender: FDA-Public Use
  Company Number: None

PATIENT

DRUGS (2)
  1. VOLTAREN [Suspect]
     Indication: FIBROMYALGIA
     Dates: start: 20091204
  2. VOLTAREN [Suspect]
     Indication: OSTEOARTHRITIS
     Dates: start: 20091204

REACTIONS (5)
  - FLUID RETENTION [None]
  - JOINT SWELLING [None]
  - OEDEMA PERIPHERAL [None]
  - SWELLING FACE [None]
  - URTICARIA [None]
